FAERS Safety Report 19358694 (Version 4)
Quarter: 2021Q3

REPORT INFORMATION
  Report Type: Spontaneous
  Country: JP (occurrence: JP)
  Receive Date: 20210602
  Receipt Date: 20210805
  Transmission Date: 20211014
  Serious: Yes (Hospitalization, Other)
  Sender: FDA-Public Use
  Company Number: JP-GLAXOSMITHKLINE-JP2021114391

PATIENT
  Age: 52 Year
  Sex: Male

DRUGS (11)
  1. MEILAX TABLETS [Concomitant]
     Indication: ANXIETY
     Dosage: 1 MG BEFORE BEDTIME, PRN AT ANXIETY
     Route: 048
  2. MICATRIO COMBINATION TABLET [Suspect]
     Active Substance: AMLODIPINE\HYDROCHLOROTHIAZIDE\TELMISARTAN
     Dosage: 1 DF, QD AFTER BREAKFAST
     Route: 048
     Dates: end: 20210517
  3. LAMICTAL [Suspect]
     Active Substance: LAMOTRIGINE
     Indication: BIPOLAR DISORDER
     Dosage: 25 MG, QD  MORNING
     Route: 048
     Dates: end: 20210516
  4. LAMOTRIGINE. [Suspect]
     Active Substance: LAMOTRIGINE
     Indication: BIPOLAR DISORDER
     Dosage: 25 MG, QD MORNING
     Route: 048
     Dates: start: 20210517
  5. GOOFICE TABLET [Concomitant]
     Dosage: 10 MG, QD BEFORE DINNER
     Route: 048
  6. DEPAKENE?R TABLET [Suspect]
     Active Substance: VALPROATE SODIUM
     Indication: BIPOLAR DISORDER
     Dosage: 200MG AT MORNING?600MG BEFORE BEDTIME, BID
     Route: 048
     Dates: end: 20210517
  7. ZOLPIDEM TARTRATE TABLETS [Concomitant]
     Active Substance: ZOLPIDEM TARTRATE
     Indication: INSOMNIA
     Dosage: 10 MG BEFORE BEDTIME, PRN
     Route: 048
  8. LUNESTA TABLETS [Concomitant]
     Dosage: 2 MG, QD BEFORE BEDTIME
     Route: 048
  9. RISPERDAL [Suspect]
     Active Substance: RISPERIDONE
     Dosage: 1 MG, QD BEFORE BEDTIME
     Route: 048
     Dates: end: 20210517
  10. MAGMITT TABLET [Concomitant]
     Dosage: 330 MG, QD AFTER BREAKFAST
     Route: 048
  11. EQUMET COMBINATION TABLETS LD [Concomitant]
     Dosage: UNK UNK, BID

REACTIONS (5)
  - Malaise [Recovered/Resolved]
  - Anuria [Recovering/Resolving]
  - Acute kidney injury [Recovered/Resolved]
  - Asthenia [Recovering/Resolving]
  - Rhabdomyolysis [Recovered/Resolved]

NARRATIVE: CASE EVENT DATE: 20210516
